FAERS Safety Report 7877834-4 (Version None)
Quarter: 2011Q4

REPORT INFORMATION
  Report Type: 
  Country: None (occurrence: None)
  Receive Date: 20111031
  Receipt Date: 20111031
  Transmission Date: 20120403
  Serious: Yes (Other)
  Sender: FDA-Public Use
  Company Number: None

PATIENT
  Age: 67 Year
  Sex: Female
  Weight: 68.038 kg

DRUGS (2)
  1. ACETAZOLAMIDE [Suspect]
     Indication: RETINAL VEIN OCCLUSION
     Dosage: 1 TABLET
     Route: 048
     Dates: start: 20111015, end: 20111017
  2. ACETAZOLAMIDE [Suspect]
     Indication: GLAUCOMA
     Dosage: 1 TABLET
     Route: 048
     Dates: start: 20111015, end: 20111017

REACTIONS (4)
  - CONSTIPATION [None]
  - ASTHENIA [None]
  - NAUSEA [None]
  - DEHYDRATION [None]
